FAERS Safety Report 5719988-1 (Version None)
Quarter: 2008Q2

REPORT INFORMATION
  Report Type: 
  Country: None (occurrence: None)
  Receive Date: 20080424
  Receipt Date: 20080414
  Transmission Date: 20081010
  Serious: Yes (Hospitalization)
  Sender: FDA-Public Use
  Company Number: 2008BI009842

PATIENT
  Age: 54 Year
  Sex: Male

DRUGS (12)
  1. AVONEX [Suspect]
     Indication: MULTIPLE SCLEROSIS
     Dosage: 30 UG;QW;IM
     Route: 030
     Dates: start: 20070301, end: 20080201
  2. BACLOFEN [Concomitant]
  3. LYRICA [Concomitant]
  4. ADDERALL 10 [Concomitant]
  5. CELEXA [Concomitant]
  6. OXYCONTIN [Concomitant]
  7. ZOCOR [Concomitant]
  8. DECADRON [Concomitant]
  9. PROPONIX [Concomitant]
  10. NORCO [Concomitant]
  11. FLONASE [Concomitant]
  12. KEPPRA [Concomitant]

REACTIONS (11)
  - CEREBRAL FUNGAL INFECTION [None]
  - CHROMATOPSIA [None]
  - CONFUSIONAL STATE [None]
  - FATIGUE [None]
  - HEADACHE [None]
  - LUNG DISORDER [None]
  - LUNG INFECTION [None]
  - LUNG INFILTRATION [None]
  - NOCARDIOSIS [None]
  - PLEURAL EFFUSION [None]
  - SOMNOLENCE [None]
